FAERS Safety Report 5223478-2 (Version None)
Quarter: 2007Q1

REPORT INFORMATION
  Report Type: 
  Country: None (occurrence: None)
  Receive Date: 20070125
  Receipt Date: 20070117
  Transmission Date: 20070707
  Serious: Yes (Hospitalization)
  Sender: FDA-Public Use
  Company Number: VNL_0384_2007

PATIENT
  Age: 76 Year
  Sex: Male
  Weight: 54.8852 kg

DRUGS (20)
  1. APOKYN [Suspect]
     Indication: PARKINSON'S DISEASE
     Dosage: 0.2 ML QDAY SC
     Route: 058
     Dates: start: 20061208
  2. APOKYN [Suspect]
     Indication: PARKINSON'S DISEASE
     Dosage: 0.2 ML QDFAY SC
     Route: 058
  3. COREG [Concomitant]
  4. STALVEO [Concomitant]
  5. AZILECT [Concomitant]
  6. LASIX [Concomitant]
  7. ALTPACE [Concomitant]
  8. REQUIP [Concomitant]
  9. ZOCOR [Concomitant]
  10. PLAVIX [Concomitant]
  11. TIGAN [Concomitant]
  12. OMEPRAZOLE [Concomitant]
  13. LACTULOSE [Concomitant]
  14. ASPIRIN [Concomitant]
  15. ASCORBIC ACID [Concomitant]
  16. BENEFEBER [Concomitant]
  17. MULTI-VITAMIN [Concomitant]
  18. GARLIC [Concomitant]
  19. TYLENOL [Concomitant]
  20. ENSURE [Concomitant]

REACTIONS (2)
  - CARDIAC FAILURE CONGESTIVE [None]
  - INTRACARDIAC THROMBUS [None]
